FAERS Safety Report 25409871 (Version 2)
Quarter: 2025Q3

REPORT INFORMATION
  Report Type: Report from Study
  Country: BR (occurrence: BR)
  Receive Date: 20250607
  Receipt Date: 20250825
  Transmission Date: 20251021
  Serious: Yes (Hospitalization, Disabling, Other)
  Sender: TAKEDA
  Company Number: BR-TAKEDA-BR201920661

PATIENT
  Age: 61 Year
  Sex: Male
  Weight: 112 kg

DRUGS (17)
  1. AGALSIDASE ALFA [Suspect]
     Active Substance: AGALSIDASE ALFA
     Indication: Fabry^s disease
     Dosage: 6 DOSAGE FORM, Q2WEEKS
  2. AGALSIDASE ALFA [Suspect]
     Active Substance: AGALSIDASE ALFA
     Dosage: UNK UNK, 2/MONTH
     Dates: start: 20110608
  3. AGALSIDASE ALFA [Suspect]
     Active Substance: AGALSIDASE ALFA
  4. AGALSIDASE ALFA [Suspect]
     Active Substance: AGALSIDASE ALFA
  5. ELAPRASE [Suspect]
     Active Substance: IDURSULFASE
     Indication: Mucopolysaccharidosis II
  6. MYFORTIC [Concomitant]
     Active Substance: MYCOPHENOLATE SODIUM
     Indication: Renal disorder
  7. MYFORTIC [Concomitant]
     Active Substance: MYCOPHENOLATE SODIUM
     Indication: Organ transplant
  8. PREDNISONE [Concomitant]
     Active Substance: PREDNISONE
     Indication: Renal disorder
  9. PREDNISONE [Concomitant]
     Active Substance: PREDNISONE
     Indication: Organ transplant
  10. ATENOLOL [Concomitant]
     Active Substance: ATENOLOL
     Indication: Renal disorder
  11. ATENOLOL [Concomitant]
     Active Substance: ATENOLOL
     Indication: Organ transplant
  12. LASIX [Concomitant]
     Active Substance: FUROSEMIDE
     Indication: Renal disorder
  13. LASIX [Concomitant]
     Active Substance: FUROSEMIDE
     Indication: Organ transplant
  14. CYCLOSPORINE [Concomitant]
     Active Substance: CYCLOSPORINE
     Indication: Renal disorder
  15. CYCLOSPORINE [Concomitant]
     Active Substance: CYCLOSPORINE
     Indication: Organ transplant
  16. ESOMEPRAZOLE [Concomitant]
     Active Substance: ESOMEPRAZOLE
     Indication: Renal disorder
  17. ESOMEPRAZOLE [Concomitant]
     Active Substance: ESOMEPRAZOLE
     Indication: Organ transplant

REACTIONS (8)
  - Respiratory tract infection [Not Recovered/Not Resolved]
  - Osteomyelitis [Unknown]
  - Localised infection [Unknown]
  - Arthritis infective [Recovered/Resolved with Sequelae]
  - Arthropathy [Recovered/Resolved with Sequelae]
  - Product dose omission issue [Unknown]
  - Product use issue [Unknown]
  - Inappropriate schedule of product administration [Unknown]

NARRATIVE: CASE EVENT DATE: 20190308
